FAERS Safety Report 10539009 (Version 1)
Quarter: 2014Q4

REPORT INFORMATION
  Report Type: Spontaneous
  Country: US (occurrence: US)
  Receive Date: 20141023
  Receipt Date: 20141023
  Transmission Date: 20150529
  Serious: Yes (Other)
  Sender: FDA-Public Use
  Company Number: US-JNJFOC-20141011020

PATIENT
  Sex: Female

DRUGS (2)
  1. DOXORUBICIN [Suspect]
     Active Substance: DOXORUBICIN
     Indication: OVARIAN CANCER
     Route: 042
  2. CARBOPLATIN. [Suspect]
     Active Substance: CARBOPLATIN
     Indication: OVARIAN CANCER
     Route: 065

REACTIONS (6)
  - Mucosal inflammation [Unknown]
  - Hypersensitivity [Unknown]
  - Peripheral sensory neuropathy [Unknown]
  - Nausea [Unknown]
  - Palmar-plantar erythrodysaesthesia syndrome [Unknown]
  - Alopecia [Unknown]
